FAERS Safety Report 8256805-2 (Version None)
Quarter: 2012Q2

REPORT INFORMATION
  Report Type: 
  Country: None (occurrence: None)
  Receive Date: 20120403
  Receipt Date: 20120328
  Transmission Date: 20120825
  Serious: Yes (Death)
  Sender: FDA-Public Use
  Company Number: PHHY2012HU017803

PATIENT
  Age: 40 Year
  Sex: Female

DRUGS (3)
  1. ZOMETA [Suspect]
     Dosage: UNK
     Dates: start: 20090615
  2. CHEMOTHERAPEUTICS NOS [Concomitant]
     Dosage: UNK
  3. ZOMETA [Suspect]
     Dosage: UNK
     Dates: start: 20090525

REACTIONS (2)
  - NEOPLASM PROGRESSION [None]
  - NEOPLASM MALIGNANT [None]
